FAERS Safety Report 7222833-9 (Version None)
Quarter: 2011Q1

REPORT INFORMATION
  Report Type: 
  Country: None (occurrence: None)
  Receive Date: 20110106
  Receipt Date: 20110106
  Transmission Date: 20110831
  Serious: Yes (Disabling)
  Sender: FDA-Public Use
  Company Number: None

PATIENT
  Sex: Female
  Weight: 96.1626 kg

DRUGS (2)
  1. ABILIFY [Suspect]
     Indication: DEPRESSION
     Dosage: 1 TABLET 1X DAY ORALLY
     Route: 048
     Dates: start: 20050101, end: 20091201
  2. ABILIFY [Suspect]
     Indication: ANXIETY
     Dosage: 1 TABLET 1X DAY ORALLY
     Route: 048
     Dates: start: 20050101, end: 20091201

REACTIONS (4)
  - PALPITATIONS [None]
  - INSOMNIA [None]
  - JAW DISORDER [None]
  - BRUXISM [None]
